FAERS Safety Report 8879164 (Version 1)
Quarter: 2012Q4

REPORT INFORMATION
  Report Type: Spontaneous
  Country: US (occurrence: None)
  Receive Date: 20121031
  Receipt Date: 20121031
  Transmission Date: 20130627
  Serious: Yes (Life-Threatening)
  Sender: FDA-Public Use
  Company Number: None

PATIENT
  Age: 55 Year
  Sex: Male
  Weight: 106.6 kg

DRUGS (16)
  1. TRIMIX [Suspect]
     Indication: IMPOTENT
     Dosage: USE AS DIRECTED URETHRAL
     Route: 066
     Dates: start: 20120202
  2. TRIMIX [Suspect]
     Indication: IMPOTENT
     Dates: start: 20120920
  3. GLYNASE [Concomitant]
  4. TRAZODONE [Concomitant]
  5. AMLODIPINE [Concomitant]
  6. LOSARTAN [Concomitant]
  7. ALPRAZOLAM [Concomitant]
  8. SERTRALINE [Concomitant]
  9. AMITRIPTILINE [Concomitant]
  10. IBUPROFEN [Concomitant]
  11. ACETAMINOPHEN [Concomitant]
  12. NYQUIL [Concomitant]
  13. SUDAFED [Concomitant]
  14. SAW PALMETTO [Concomitant]
  15. FISH OIL [Concomitant]
  16. MULTIVITAMIN [Concomitant]

REACTIONS (4)
  - Erection increased [None]
  - Ejaculation failure [None]
  - Penile pain [None]
  - Skin discolouration [None]
